FAERS Safety Report 13553333 (Version 1)
Quarter: 2017Q2

REPORT INFORMATION
  Report Type: Spontaneous
  Country: US (occurrence: US)
  Receive Date: 20170516
  Receipt Date: 20170516
  Transmission Date: 20170830
  Serious: Yes (Life-Threatening)
  Sender: FDA-Public Use
  Company Number: None

PATIENT
  Age: 25 Year
  Sex: Female
  Weight: 79.65 kg

DRUGS (9)
  1. DIFLUCAN [Concomitant]
     Active Substance: FLUCONAZOLE
  2. MELATONIN [Concomitant]
     Active Substance: MELATONIN
  3. LEVITHYROXINE [Concomitant]
  4. EXCEDRIN [Concomitant]
     Active Substance: ACETAMINOPHEN\ASPIRIN\CAFFEINE
  5. CLARITIN [Concomitant]
     Active Substance: LORATADINE
  6. SINGULAIR [Concomitant]
     Active Substance: MONTELUKAST SODIUM
  7. BENADRYL [Concomitant]
     Active Substance: DIPHENHYDRAMINE HYDROCHLORIDE
  8. PEPCID [Concomitant]
     Active Substance: FAMOTIDINE
  9. PROGESTERONE SUB FOR PROMETRIUM [Suspect]
     Active Substance: PROGESTERONE
     Indication: DYSMENORRHOEA
     Dosage: ?          QUANTITY:1 CAPSULE(S);?
     Route: 048
     Dates: start: 20170503, end: 20170510

REACTIONS (2)
  - Depressed mood [None]
  - Suicidal ideation [None]

NARRATIVE: CASE EVENT DATE: 20170510
